FAERS Safety Report 8419933-4 (Version None)
Quarter: 2012Q2

REPORT INFORMATION
  Report Type: 
  Country: None (occurrence: None)
  Receive Date: 20120607
  Receipt Date: 20120525
  Transmission Date: 20120825
  Serious: Yes (Death, Hospitalization)
  Sender: FDA-Public Use
  Company Number: ES-CELGENEUS-144-21880-09031687

PATIENT
  Age: 88 Year
  Sex: Male
  Weight: 70 kg

DRUGS (11)
  1. MORPHINE [Concomitant]
     Route: 041
     Dates: start: 20090327, end: 20090331
  2. ENOXAPARIN [Concomitant]
     Dosage: 40 MILLIGRAM
     Route: 058
     Dates: start: 20090327, end: 20090330
  3. LEVOFLOXACIN [Concomitant]
     Dosage: 250 MILLIGRAM
     Route: 041
     Dates: start: 20090327, end: 20090331
  4. DIGOXIN [Concomitant]
     Dosage: .125 MILLIGRAM
     Route: 041
     Dates: start: 20090328, end: 20090331
  5. ACYCLOVIR [Concomitant]
     Indication: HERPES ZOSTER
     Route: 003
     Dates: start: 20090324, end: 20090331
  6. VENTOLIN [Concomitant]
     Indication: PROPHYLAXIS
     Route: 055
     Dates: start: 20090323, end: 20090330
  7. REVLIMID [Suspect]
     Indication: MULTIPLE MYELOMA
     Dosage: 15 MILLIGRAM
     Route: 048
     Dates: start: 20090225, end: 20090322
  8. DIGOXIN [Concomitant]
     Indication: TACHYCARDIA
     Dosage: .25 MILLIGRAM
     Route: 041
     Dates: start: 20090327, end: 20090327
  9. ATROVENT [Concomitant]
     Indication: PROPHYLAXIS
     Dosage: 20 MICROGRAM
     Route: 055
     Dates: start: 20090323, end: 20090330
  10. LEVOFLOXACIN [Concomitant]
     Indication: PROPHYLAXIS
     Dosage: 250 MILLIGRAM
     Route: 041
     Dates: start: 20090322, end: 20090326
  11. ENOXAPARIN [Concomitant]
     Dosage: 20 MILLIGRAM
     Route: 058
     Dates: start: 20090323, end: 20090326

REACTIONS (4)
  - RENAL FAILURE [None]
  - DYSPNOEA [None]
  - ANAEMIA [None]
  - HYPOCALCAEMIA [None]
